FAERS Safety Report 10032844 (Version 3)
Quarter: 2014Q4

REPORT INFORMATION
  Report Type: Spontaneous
  Country: FR (occurrence: FR)
  Receive Date: 20140324
  Receipt Date: 20141029
  Transmission Date: 20150528
  Serious: Yes (Death, Life-Threatening, Hospitalization, Other)
  Sender: FDA-Public Use
  Company Number: FR-PFIZER INC-2014081429

PATIENT
  Age: 44 Year
  Sex: Male

DRUGS (6)
  1. ZOPICLONE [Suspect]
     Active Substance: ZOPICLONE
     Dosage: 14 DF, SINGLE
     Route: 048
     Dates: start: 20140110, end: 20140110
  2. CELOCURINE [Suspect]
     Active Substance: SUCCINYLCHOLINE CHLORIDE
     Indication: NEUROMUSCULAR BLOCKING THERAPY
     Dosage: UNK
  3. XANAX [Suspect]
     Active Substance: ALPRAZOLAM
     Dosage: 20 DF, SINGLE
     Route: 048
     Dates: start: 20140110, end: 20140110
  4. XEROQUEL [Suspect]
     Active Substance: QUETIAPINE FUMARATE
     Dosage: 50 DF, SINGLE
     Route: 048
     Dates: start: 20140110, end: 20140110
  5. MELATONIN [Suspect]
     Active Substance: MELATONIN
     Dosage: 10 DF, SINGLE
     Route: 048
     Dates: start: 20140110, end: 20140110
  6. DONORMYL [Suspect]
     Active Substance: DOXYLAMINE SUCCINATE
     Dosage: 10 DF, SINGLE
     Route: 048
     Dates: start: 20140110, end: 20140110

REACTIONS (13)
  - Pneumonia [Unknown]
  - Neuromyopathy [Fatal]
  - Acute respiratory distress syndrome [Recovering/Resolving]
  - Renal impairment [Unknown]
  - Muscle rigidity [Recovered/Resolved with Sequelae]
  - Rhabdomyolysis [Recovered/Resolved with Sequelae]
  - Altered state of consciousness [Not Recovered/Not Resolved]
  - Hyperthermia malignant [Recovered/Resolved with Sequelae]
  - Quadriplegia [Unknown]
  - Sepsis [Unknown]
  - Neuroleptic malignant syndrome [Recovered/Resolved with Sequelae]
  - Suicide attempt [Unknown]
  - Oliguria [Unknown]

NARRATIVE: CASE EVENT DATE: 2014
